FAERS Safety Report 10128999 (Version 1)
Quarter: 2014Q2

REPORT INFORMATION
  Report Type: Spontaneous
  Country: US (occurrence: None)
  Receive Date: 20140424
  Receipt Date: 20140424
  Transmission Date: 20141212
  Serious: No
  Sender: FDA-Public Use
  Company Number: None

PATIENT
  Age: 31 Year
  Sex: Female
  Weight: 88.45 kg

DRUGS (2)
  1. ESCITALOPRAM [Suspect]
     Indication: GENERALISED ANXIETY DISORDER
     Dosage: 1 TAB
     Route: 048
     Dates: start: 20120601, end: 20120618
  2. ESCITALOPRAM [Suspect]
     Indication: DEPRESSION
     Dosage: 1 TAB
     Route: 048
     Dates: start: 20120601, end: 20120618

REACTIONS (3)
  - Drug ineffective [None]
  - Depression [None]
  - Product substitution issue [None]
